FAERS Safety Report 6184595-6 (Version None)
Quarter: 2009Q2

REPORT INFORMATION
  Report Type: 
  Country: None (occurrence: None)
  Receive Date: 20090508
  Receipt Date: 20090505
  Transmission Date: 20091009
  Serious: Yes (Life-Threatening, Hospitalization, Disabling, Other)
  Sender: FDA-Public Use
  Company Number: PHHY2009GB15152

PATIENT
  Sex: Male

DRUGS (5)
  1. CLOZARIL [Suspect]
     Indication: SCHIZOPHRENIA
     Dosage: 300 MG/DAY
     Route: 048
     Dates: start: 20090324
  2. EFFEXOR XR [Concomitant]
     Indication: DEPRESSIVE SYMPTOM
     Dosage: 150 MG
     Route: 048
     Dates: start: 20081101
  3. CHLORPROMAZINE [Concomitant]
     Dosage: 400 MG
     Route: 048
     Dates: start: 20090101
  4. FLUPENTIXOL DECANOATE [Concomitant]
     Dosage: 100 MG
     Dates: start: 20081101, end: 20090320
  5. PROCYCLIDINE HYDROCHLORIDE 2MG TAB [Concomitant]
     Dosage: 20 MG
     Route: 048
     Dates: end: 20090301

REACTIONS (5)
  - BLOOD GLUCOSE INCREASED [None]
  - DIABETES MELLITUS [None]
  - GLYCOSYLATED HAEMOGLOBIN INCREASED [None]
  - MENTAL IMPAIRMENT [None]
  - PLATELET COUNT INCREASED [None]
